FAERS Safety Report 5073454-8 (Version None)
Quarter: 2006Q3

REPORT INFORMATION
  Report Type: 
  Country: None (occurrence: None)
  Receive Date: 20060803
  Receipt Date: 20060719
  Transmission Date: 20061208
  Serious: Yes (Hospitalization)
  Sender: FDA-Public Use
  Company Number: 2006S1006705

PATIENT
  Age: 46 Year
  Sex: Male
  Weight: 66.452 kg

DRUGS (3)
  1. AMITRIPTYLINE HCL [Suspect]
     Indication: MIGRAINE PROPHYLAXIS
     Dosage: 100 MG; PO
     Route: 048
     Dates: start: 20040504, end: 20040805
  2. PETHIDINE HYDROCHLORIDE [Concomitant]
  3. PROMETYHAZINE HYDROCHLORIDE [Concomitant]

REACTIONS (2)
  - CHOLELITHIASIS [None]
  - MIGRAINE [None]
